FAERS Safety Report 25763823 (Version 1)
Quarter: 2025Q3

REPORT INFORMATION
  Report Type: Spontaneous
  Country: US (occurrence: US)
  Receive Date: 20250905
  Receipt Date: 20250905
  Transmission Date: 20251020
  Serious: No
  Sender: DOMPE FARMACEUTICI
  Company Number: US-FARMAPROD-202411-3979

PATIENT
  Age: 76 Year
  Sex: Male

DRUGS (21)
  1. OXERVATE [Suspect]
     Active Substance: CENEGERMIN-BKBJ
     Indication: Ulcerative keratitis
     Route: 047
     Dates: start: 20241115
  2. PREDNISOLONE [Concomitant]
     Active Substance: PREDNISOLONE
  3. DULOXETINE HYDROCHLORIDE [Concomitant]
     Active Substance: DULOXETINE HYDROCHLORIDE
  4. ASPIRIN [Concomitant]
     Active Substance: ASPIRIN
  5. DULOXETINE HYDROCHLORIDE [Concomitant]
     Active Substance: DULOXETINE HYDROCHLORIDE
  6. OMEPRAZOLE [Concomitant]
     Active Substance: OMEPRAZOLE
  7. OZEMPIC [Concomitant]
     Active Substance: SEMAGLUTIDE
  8. MODAFINIL [Concomitant]
     Active Substance: MODAFINIL
  9. ROSUVASTATIN CALCIUM [Concomitant]
     Active Substance: ROSUVASTATIN CALCIUM
  10. BUPROPION [Concomitant]
     Active Substance: BUPROPION
  11. BUPRENORPHINE\NALOXONE [Concomitant]
     Active Substance: BUPRENORPHINE\NALOXONE
  12. ANASTROZOLE [Concomitant]
     Active Substance: ANASTROZOLE
  13. CELECOXIB [Concomitant]
     Active Substance: CELECOXIB
  14. BALSALAZIDE DISODIUM [Concomitant]
     Active Substance: BALSALAZIDE DISODIUM
  15. VERAPAMIL HYDROCHLORIDE [Concomitant]
     Active Substance: VERAPAMIL HYDROCHLORIDE
  16. OXYCODONE HYDROCHLORIDE [Concomitant]
     Active Substance: OXYCODONE HYDROCHLORIDE
  17. TESTOSTERONE CYPIONATE [Concomitant]
     Active Substance: TESTOSTERONE CYPIONATE
  18. VITAMIN D3 [Concomitant]
     Active Substance: CHOLECALCIFEROL
  19. CEQUA [Concomitant]
     Active Substance: CYCLOSPORINE
  20. ONDANSETRON [Concomitant]
     Active Substance: ONDANSETRON
  21. LATANOPROST [Concomitant]
     Active Substance: LATANOPROST

REACTIONS (5)
  - Eye pain [Unknown]
  - Mydriasis [Unknown]
  - Photophobia [Unknown]
  - Eye discharge [Unknown]
  - Visual impairment [Unknown]

NARRATIVE: CASE EVENT DATE: 20241116
